FAERS Safety Report 8305728-9 (Version None)
Quarter: 2012Q1

REPORT INFORMATION
  Report Type: 
  Country: None (occurrence: None)
  Receive Date: 20120326
  Receipt Date: 20111209
  Transmission Date: 20120608
  Serious: Yes (Other)
  Sender: FDA-Public Use
  Company Number: PHEH2011US011356

PATIENT
  Age: 58 Year
  Sex: Male

DRUGS (3)
  1. TASIGNA [Suspect]
     Dosage: SEE IMAGE
     Route: 048
     Dates: start: 20110501
  2. ASPIRIN [Concomitant]
  3. AUGMENTIN '125' [Suspect]
     Dosage: 2 DF, DAILY

REACTIONS (3)
  - FULL BLOOD COUNT DECREASED [None]
  - DIZZINESS [None]
  - MALAISE [None]
